FAERS Safety Report 6111641-8 (Version None)
Quarter: 2009Q1

REPORT INFORMATION
  Report Type: 
  Country: None (occurrence: None)
  Receive Date: 20090311
  Receipt Date: 20090227
  Transmission Date: 20090719
  Serious: Yes (Other)
  Sender: FDA-Public Use
  Company Number: GB-PFIZER INC-2009176824

PATIENT

DRUGS (3)
  1. PREGABALIN [Suspect]
     Indication: DYSPAREUNIA
     Route: 048
     Dates: start: 20090126, end: 20090205
  2. SALBUTAMOL SULFATE [Concomitant]
     Indication: ASTHMA
     Dosage: UNK
     Dates: start: 20050101
  3. TRIMOVATE [Concomitant]
     Indication: DYSPAREUNIA
     Dosage: UNK
     Route: 061
     Dates: start: 20081130

REACTIONS (5)
  - ANXIETY [None]
  - CHEST DISCOMFORT [None]
  - DEPRESSION SUICIDAL [None]
  - EYE IRRITATION [None]
  - PARANOIA [None]
